FAERS Safety Report 20359238 (Version 1)
Quarter: 2022Q1

REPORT INFORMATION
  Report Type: Spontaneous
  Country: US (occurrence: US)
  Receive Date: 20220121
  Receipt Date: 20220121
  Transmission Date: 20220423
  Serious: No
  Sender: FDA-Public Use
  Company Number: US-SA-SAC20220118000880

PATIENT
  Age: 63 Year
  Sex: Male

DRUGS (2)
  1. DUPIXENT [Suspect]
     Active Substance: DUPILUMAB
     Dosage: 300 MG, QOW
     Route: 058
     Dates: start: 20211101
  2. VISINE [MACROGOL;TETRYZOLINE HYDROCHLORIDE] [Concomitant]
     Dosage: UNK

REACTIONS (2)
  - Dry eye [Unknown]
  - Eye irritation [Unknown]

NARRATIVE: CASE EVENT DATE: 20220112
